APPROVED DRUG PRODUCT: TOLMETIN SODIUM
Active Ingredient: TOLMETIN SODIUM
Strength: EQ 600MG BASE
Dosage Form/Route: TABLET;ORAL
Application: A074002 | Product #001
Applicant: CHARTWELL RX SCIENCES LLC
Approved: Sep 27, 1993 | RLD: No | RS: No | Type: DISCN